FAERS Safety Report 7259073-3 (Version None)
Quarter: 2011Q1

REPORT INFORMATION
  Report Type: 
  Country: None (occurrence: None)
  Receive Date: 20110129
  Receipt Date: 20100811
  Transmission Date: 20110831
  Serious: Yes (Hospitalization, Other)
  Sender: FDA-Public Use
  Company Number: US-ABBOTT-10P-163-0663715-00

PATIENT
  Sex: Male
  Weight: 55.842 kg

DRUGS (3)
  1. PENTASA [Concomitant]
     Indication: CROHN'S DISEASE
     Dosage: NOT REPORTED
  2. HUMIRA [Suspect]
     Indication: CROHN'S DISEASE
     Route: 058
     Dates: start: 20100101
  3. PREDNISONE [Concomitant]
     Indication: CROHN'S DISEASE

REACTIONS (2)
  - CROHN'S DISEASE [None]
  - THROMBOSIS [None]
